FAERS Safety Report 21839418 (Version 1)
Quarter: 2023Q1

REPORT INFORMATION
  Report Type: Spontaneous
  Country: BR (occurrence: BR)
  Receive Date: 20230109
  Receipt Date: 20230109
  Transmission Date: 20230417
  Serious: Yes (Death)
  Sender: FDA-Public Use
  Company Number: BR-SERVIER DO BRASIL-S23000011

PATIENT
  Age: 57 Year
  Sex: Male

DRUGS (1)
  1. LONSURF [Suspect]
     Active Substance: TIPIRACIL HYDROCHLORIDE\TRIFLURIDINE
     Indication: Adenocarcinoma gastric
     Dosage: 20 MG/ 9.420 MG, 6 TABLETS DURING 2 WEEKS AND WITH 2 WEEKS OF PAUSE
     Route: 048
     Dates: start: 20221110

REACTIONS (1)
  - Death [Fatal]

NARRATIVE: CASE EVENT DATE: 20221216
